FAERS Safety Report 17991269 (Version 2)
Quarter: 2020Q3

REPORT INFORMATION
  Report Type: Spontaneous
  Country: RO (occurrence: RO)
  Receive Date: 20200708
  Receipt Date: 20200911
  Transmission Date: 20201103
  Serious: Yes (Death, Other)
  Sender: FDA-Public Use
  Company Number: RO-SUN PHARMACEUTICAL INDUSTRIES LTD-2020RR-252353

PATIENT
  Age: 53 Year
  Sex: Male

DRUGS (11)
  1. CALCIUM FOLINAT [Suspect]
     Active Substance: LEUCOVORIN CALCIUM
     Indication: CHEMOTHERAPY
     Dosage: 200 MG/M2 IV ON DAYS 1 AND 2
     Route: 042
  2. 5?FU [Suspect]
     Active Substance: FLUOROURACIL
     Dosage: 2400 MG/M2 IV CONTINUOUS INFUSION FOR 46 HOURS
     Route: 042
  3. CAPECITABINE. [Suspect]
     Active Substance: CAPECITABINE
     Indication: CHEMOTHERAPY
     Dosage: 1000 MG/M2 DAY 1 TO 14
     Route: 065
  4. 5?FU [Suspect]
     Active Substance: FLUOROURACIL
     Dosage: 400 MG/M2 BOLUS ON DAY 1
     Route: 042
  5. CALCIUM FOLINAT [Suspect]
     Active Substance: LEUCOVORIN CALCIUM
     Dosage: 400 MG/M2 IV ON DAY ONE EVERY TWO WEEKS
     Route: 042
  6. BEVACIZUMAB. [Suspect]
     Active Substance: BEVACIZUMAB
     Indication: CHEMOTHERAPY
     Dosage: 5 MG/KG ON A TWO?WEEK SCHEDULE
     Route: 065
  7. 5?FU [Suspect]
     Active Substance: FLUOROURACIL
     Indication: CHEMOTHERAPY
     Dosage: 400 MG/M2
     Route: 042
  8. BEVACIZUMAB. [Suspect]
     Active Substance: BEVACIZUMAB
     Dosage: 7.5 MG/KG EVERY THREE WEEKS
     Route: 065
  9. IRINOTECAN [Suspect]
     Active Substance: IRINOTECAN
     Indication: CHEMOTHERAPY
     Dosage: 180 MG/ M2 ON DAY 1
     Route: 042
  10. OXALIPLATIN. [Suspect]
     Active Substance: OXALIPLATIN
     Indication: CHEMOTHERAPY
     Dosage: 85 MG/M2  ON DAY 1,
     Route: 042
  11. 5?FU [Suspect]
     Active Substance: FLUOROURACIL
     Dosage: 600 MG/M2
     Route: 042

REACTIONS (4)
  - Disease progression [Unknown]
  - Therapeutic product effect incomplete [Unknown]
  - Hepatic failure [Fatal]
  - Neuropathy peripheral [Unknown]
